FAERS Safety Report 13237656 (Version 1)
Quarter: 2017Q1

REPORT INFORMATION
  Report Type: Spontaneous
  Country: None (occurrence: US)
  Receive Date: 20170215
  Receipt Date: 20170215
  Transmission Date: 20170428
  Serious: Yes (Hospitalization)
  Sender: FDA-Public Use
  Company Number: None

PATIENT
  Sex: Male
  Weight: 77.5 kg

DRUGS (2)
  1. 5-FLUOROURACIL (5-FU) [Suspect]
     Active Substance: FLUOROURACIL
     Dates: end: 20161220
  2. ELOXATIN [Suspect]
     Active Substance: OXALIPLATIN
     Dates: end: 20161220

REACTIONS (1)
  - Cystostomy [None]

NARRATIVE: CASE EVENT DATE: 20170124
